FAERS Safety Report 5761905-2 (Version None)
Quarter: 2008Q2

REPORT INFORMATION
  Report Type: 
  Country: None (occurrence: None)
  Receive Date: 20080606
  Receipt Date: 20080527
  Transmission Date: 20081010
  Serious: Yes (Other)
  Sender: FDA-Public Use
  Company Number: US-PFIZER INC-2008028239

PATIENT
  Sex: Female
  Weight: 134.3 kg

DRUGS (13)
  1. CELEBREX [Suspect]
     Indication: ARTHRITIS
     Route: 048
     Dates: start: 20071114, end: 20080131
  2. CELEBREX [Suspect]
     Indication: ARTHRALGIA
  3. CELEBREX [Suspect]
     Indication: SPINAL OSTEOARTHRITIS
  4. NEXIUM [Concomitant]
     Dosage: DAILY DOSE:40MG
  5. CELEXA [Concomitant]
  6. CYCLOBENZAPRINE HCL [Concomitant]
  7. PLENDIL [Concomitant]
  8. LEVOXYL [Concomitant]
  9. ATACAND [Concomitant]
  10. HYDROCHLOROTHIAZIDE [Concomitant]
  11. NORVASC [Concomitant]
     Dosage: DAILY DOSE:40MG
  12. ZOCOR [Concomitant]
     Dosage: DAILY DOSE:40MG
  13. FLEXERIL [Concomitant]

REACTIONS (1)
  - PALPITATIONS [None]
